FAERS Safety Report 12740118 (Version 3)
Quarter: 2016Q4

REPORT INFORMATION
  Report Type: Report from Study
  Country: None (occurrence: CA)
  Receive Date: 20160913
  Receipt Date: 20161012
  Transmission Date: 20170207
  Serious: Yes (Death, Hospitalization)
  Sender: FDA-Public Use
  Company Number: CA-ABBVIE-16K-028-1725715-00

PATIENT
  Age: 73 Year
  Sex: Male
  Weight: 65 kg

DRUGS (5)
  1. ALENDRONATE [Concomitant]
     Active Substance: ALENDRONATE SODIUM
     Indication: PROPHYLAXIS
     Route: 048
     Dates: start: 2012, end: 20160727
  2. ARAVA [Concomitant]
     Active Substance: LEFLUNOMIDE
     Indication: RHEUMATOID ARTHRITIS
     Route: 048
     Dates: start: 20141009, end: 20160727
  3. MAVIK [Concomitant]
     Active Substance: TRANDOLAPRIL
     Indication: HYPERTENSION
     Route: 048
     Dates: start: 20160727
  4. HUMIRA [Suspect]
     Active Substance: ADALIMUMAB
     Indication: RHEUMATOID ARTHRITIS
     Route: 058
     Dates: start: 20120620, end: 201609
  5. LANSOPRAZOLE. [Concomitant]
     Active Substance: LANSOPRAZOLE
     Indication: GASTROOESOPHAGEAL REFLUX DISEASE
     Route: 048
     Dates: end: 20160909

REACTIONS (3)
  - Metastases to central nervous system [Fatal]
  - Lung cancer metastatic [Fatal]
  - Ataxia [Fatal]

NARRATIVE: CASE EVENT DATE: 201308
